FAERS Safety Report 14573197 (Version 1)
Quarter: 2018Q1

REPORT INFORMATION
  Report Type: Spontaneous
  Country: RU (occurrence: RU)
  Receive Date: 20180226
  Receipt Date: 20180226
  Transmission Date: 20180509
  Serious: Yes (Other)
  Sender: FDA-Public Use
  Company Number: RU-ASTRAZENECA-2018SE23412

PATIENT
  Age: 39 Year
  Sex: Male
  Weight: 100 kg

DRUGS (5)
  1. LOSAP [Concomitant]
  2. THROMBO ASS [Concomitant]
     Active Substance: ASPIRIN
  3. TORVACARD [Concomitant]
     Active Substance: ATORVASTATIN CALCIUM
  4. BRILINTA [Suspect]
     Active Substance: TICAGRELOR
     Indication: MYOCARDIAL INFARCTION
     Route: 048
     Dates: start: 20160202
  5. CONCOR [Concomitant]
     Active Substance: BISOPROLOL FUMARATE

REACTIONS (3)
  - Off label use [Not Recovered/Not Resolved]
  - Product prescribing issue [Not Recovered/Not Resolved]
  - Vascular stenosis [Not Recovered/Not Resolved]
